FAERS Safety Report 12662241 (Version 3)
Quarter: 2016Q3

REPORT INFORMATION
  Report Type: Spontaneous
  Country: US (occurrence: US)
  Receive Date: 20160817
  Receipt Date: 20160906
  Transmission Date: 20161109
  Serious: Yes (Hospitalization, Other)
  Sender: FDA-Public Use
  Company Number: US-LUNDBECK-DKLU2017770

PATIENT
  Age: 73 Year
  Sex: Female

DRUGS (1)
  1. NORTHERA [Suspect]
     Active Substance: DROXIDOPA
     Indication: PRODUCT USED FOR UNKNOWN INDICATION
     Route: 065
     Dates: start: 20160707

REACTIONS (10)
  - Upper limb fracture [Unknown]
  - Syncope [Unknown]
  - Drug dose omission [Unknown]
  - Blood potassium decreased [Unknown]
  - Back pain [Unknown]
  - Dizziness [Unknown]
  - Heart rate increased [Unknown]
  - Memory impairment [Recovering/Resolving]
  - Fall [Unknown]
  - Arthralgia [Unknown]

NARRATIVE: CASE EVENT DATE: 20160809
